FAERS Safety Report 12202216 (Version 1)
Quarter: 2020Q3

REPORT INFORMATION
  Report Type: Spontaneous
  Country: FR (occurrence: FR)
  Receive Date: 20160322
  Receipt Date: 20160322
  Transmission Date: 20201104
  Serious: Yes (Hospitalization)
  Sender: FDA-Public Use
  Company Number: FR-B. BRAUN MEDICAL INC.-1049445

PATIENT
  Age: 50 Year
  Sex: Male

DRUGS (22)
  1. PROPOFOL. [Suspect]
     Active Substance: PROPOFOL
     Route: 042
     Dates: start: 20150629, end: 20150629
  2. KETOPROFEN. [Suspect]
     Active Substance: KETOPROFEN
     Route: 042
     Dates: start: 20150629, end: 20150629
  3. IBUPROFEN. [Suspect]
     Active Substance: IBUPROFEN
     Route: 048
     Dates: start: 20150630, end: 20150701
  4. NICOTINE. [Suspect]
     Active Substance: NICOTINE
     Route: 062
     Dates: start: 20150629
  5. MIDAZOLAM HYDROCHLORIDE. [Suspect]
     Active Substance: MIDAZOLAM HYDROCHLORIDE
     Route: 042
     Dates: start: 20150629, end: 20150629
  6. ARIPIPRAZOLE. [Concomitant]
     Active Substance: ARIPIPRAZOLE
  7. ALPRAZOLAM. [Suspect]
     Active Substance: ALPRAZOLAM
     Route: 048
     Dates: start: 20150629, end: 20150701
  8. SUFENTANIL [Suspect]
     Active Substance: SUFENTANIL
     Route: 042
     Dates: start: 20150629, end: 20150629
  9. VALPROIC ACID. [Concomitant]
     Active Substance: VALPROIC ACID
  10. CEFAZOLIN SODIUM. [Suspect]
     Active Substance: CEFAZOLIN SODIUM
     Route: 042
     Dates: start: 20150629, end: 20150630
  11. MORPHINE [Suspect]
     Active Substance: MORPHINE
     Route: 042
     Dates: start: 20150629, end: 20150629
  12. EPHEDRINE. [Suspect]
     Active Substance: EPHEDRINE
     Route: 042
     Dates: start: 20150629, end: 20150629
  13. CYAMEMAZINE [Concomitant]
     Active Substance: CYAMEMAZINE
  14. CITALOPRAM [Concomitant]
     Active Substance: CITALOPRAM HYDROBROMIDE
  15. IVABRADINE [Concomitant]
     Active Substance: IVABRADINE
  16. CISATRACURIUM. [Suspect]
     Active Substance: CISATRACURIUM
     Route: 042
     Dates: start: 20150629, end: 20150629
  17. NEFOPAM HYDROCLORIDE [Suspect]
     Active Substance: NEFOPAM HYDROCHLORIDE
     Route: 042
     Dates: start: 20150629, end: 20150629
  18. ESOMEPRAZOLE. [Concomitant]
     Active Substance: ESOMEPRAZOLE MAGNESIUM
  19. TRANEXAMIC ACID. [Suspect]
     Active Substance: TRANEXAMIC ACID
     Route: 042
     Dates: start: 20150629, end: 20150629
  20. CEFAZOLIN [Suspect]
     Active Substance: CEFAZOLIN
     Route: 042
     Dates: start: 20150629, end: 20150630
  21. ONDANSETRON [Suspect]
     Active Substance: ONDANSETRON
     Route: 042
     Dates: start: 20150629, end: 20150629
  22. HETASTARCH. [Suspect]
     Active Substance: HETASTARCH
     Route: 042
     Dates: start: 20150629, end: 20150629

REACTIONS (3)
  - Pancreatitis [None]
  - Haemolytic anaemia [None]
  - Thrombotic microangiopathy [None]
